FAERS Safety Report 25218038 (Version 2)
Quarter: 2025Q2

REPORT INFORMATION
  Report Type: Spontaneous
  Country: JP (occurrence: JP)
  Receive Date: 20250421
  Receipt Date: 20250501
  Transmission Date: 20250717
  Serious: Yes (Other)
  Sender: TAKEDA
  Company Number: JP-TAKEDA-2025TJP001202

PATIENT
  Age: 56 Year
  Sex: Female

DRUGS (1)
  1. FRUZAQLA [Suspect]
     Active Substance: FRUQUINTINIB
     Indication: Product used for unknown indication

REACTIONS (6)
  - Hypothyroidism [Unknown]
  - Thrombosis [Unknown]
  - Nausea [Unknown]
  - Hypertension [Recovered/Resolved]
  - Malaise [Unknown]
  - Alopecia [Recovered/Resolved]
